FAERS Safety Report 14614430 (Version 1)
Quarter: 2018Q1

REPORT INFORMATION
  Report Type: Spontaneous
  Country: US (occurrence: US)
  Receive Date: 20180308
  Receipt Date: 20180308
  Transmission Date: 20180509
  Serious: Yes (Disabling)
  Sender: FDA-Public Use
  Company Number: None

PATIENT
  Age: 5 Year
  Sex: Female
  Weight: 27 kg

DRUGS (1)
  1. TRIAMCINOLONE [Suspect]
     Active Substance: TRIAMCINOLONE
     Indication: ECZEMA
     Dosage: ?          OTHER STRENGTH:MAXIMUM;?
     Route: 061
     Dates: start: 20091204, end: 20150501

REACTIONS (15)
  - Pruritus [None]
  - Skin atrophy [None]
  - Pallor [None]
  - Abscess [None]
  - Dry skin [None]
  - Food allergy [None]
  - Hair texture abnormal [None]
  - Skin haemorrhage [None]
  - Psychiatric symptom [None]
  - Nocturia [None]
  - Withdrawal syndrome [None]
  - Madarosis [None]
  - Cold sweat [None]
  - Skin exfoliation [None]
  - Immobile [None]

NARRATIVE: CASE EVENT DATE: 20131204
